FAERS Safety Report 17293192 (Version 2)
Quarter: 2020Q1

REPORT INFORMATION
  Report Type: Report from Study
  Country: MX (occurrence: MX)
  Receive Date: 20200121
  Receipt Date: 20200201
  Transmission Date: 20200409
  Serious: Yes (Other)
  Sender: FDA-Public Use
  Company Number: NVSC2020MX012347

PATIENT
  Age: 61 Year
  Sex: Male
  Weight: 114 kg

DRUGS (9)
  1. PREGABALINE [Concomitant]
     Active Substance: PREGABALIN
     Indication: PRODUCT USED FOR UNKNOWN INDICATION
     Dosage: 1 OT, QD
     Route: 048
     Dates: start: 20181203, end: 201907
  2. MICCIL [Concomitant]
     Indication: DIURETIC THERAPY
     Dosage: 1 MG, BID
     Route: 048
     Dates: start: 20181203
  3. TRAYENTA [Concomitant]
     Active Substance: LINAGLIPTIN
     Indication: DIABETES MELLITUS
     Dosage: 1 OT, QD
     Route: 048
     Dates: start: 20181203
  4. NEBIVOLOL. [Concomitant]
     Active Substance: NEBIVOLOL
     Indication: HYPERTENSION
     Dosage: 1 OT, QD (IN THE AFTERNOON)
     Route: 048
     Dates: start: 20181203, end: 201907
  5. INSULIN LISPRO [Concomitant]
     Active Substance: INSULIN LISPRO
     Indication: DIABETES MELLITUS
     Dosage: 15 U, QD (DAILY AT DINNER,STARTED 20 YEARS AGO)
     Route: 058
  6. VALMETROL 3 [Concomitant]
     Indication: VITAMIN D DECREASED
     Dosage: 1600 U, QD
     Route: 048
     Dates: start: 20181203
  7. ALLOPURINOL. [Concomitant]
     Active Substance: ALLOPURINOL
     Indication: BLOOD URIC ACID ABNORMAL
     Dosage: 0.5 OT, QD
     Route: 065
     Dates: start: 20181203
  8. ASPIRINE PROTECT [Concomitant]
     Active Substance: ASPIRIN
     Indication: CARDIAC DISORDER
     Dosage: 1 OT, QD
     Route: 065
     Dates: start: 20181203
  9. EXFORGE HCT [Suspect]
     Active Substance: AMLODIPINE BESYLATE\HYDROCHLOROTHIAZIDE\VALSARTAN
     Indication: HYPERTENSION
     Dosage: 1 DF, QD (AMLODIPINE 10 MG, HYDROCHOLORTHIZIDE 25 MG, VALSARTAN 320 MG), QD (STARTED APPROXIMATELY 1
     Route: 048

REACTIONS (4)
  - Productive cough [Recovered/Resolved]
  - Influenza [Recovered/Resolved]
  - Epistaxis [Recovered/Resolved]
  - Pulmonary thrombosis [Recovered/Resolved]

NARRATIVE: CASE EVENT DATE: 201912
